FAERS Safety Report 25003667 (Version 1)
Quarter: 2025Q1

REPORT INFORMATION
  Report Type: Spontaneous
  Country: US (occurrence: US)
  Receive Date: 20250224
  Receipt Date: 20250224
  Transmission Date: 20250408
  Serious: Yes (Death, Hospitalization)
  Sender: FERRING
  Company Number: US-FERRINGPH-2024FE06413

PATIENT

DRUGS (1)
  1. DESMOPRESSIN [Suspect]
     Active Substance: DESMOPRESSIN
     Indication: Diabetes insipidus
     Route: 065

REACTIONS (2)
  - Hyponatraemia [Unknown]
  - Wrong product administered [Fatal]
